FAERS Safety Report 9004355 (Version 4)
Quarter: 2013Q2

REPORT INFORMATION
  Report Type: Report from Study
  Country: DE (occurrence: LU)
  Receive Date: 20130108
  Receipt Date: 20130430
  Transmission Date: 20140414
  Serious: Yes (Hospitalization, Other)
  Sender: FDA-Public Use
  Company Number: DE-ACTELION-A-US2012-77239

PATIENT
  Sex: Female

DRUGS (3)
  1. VENTAVIS [Suspect]
     Indication: PULMONARY ARTERIAL HYPERTENSION
     Dosage: UNK
     Route: 055
     Dates: start: 20110704, end: 20130422
  2. TRACLEER [Concomitant]
     Indication: PULMONARY ARTERIAL HYPERTENSION
     Route: 048
  3. VOLIBRIS [Concomitant]

REACTIONS (3)
  - Arteriovenous shunt operation [Unknown]
  - Syncope [Unknown]
  - General physical health deterioration [Unknown]
